FAERS Safety Report 6973991-2 (Version None)
Quarter: 2010Q3

REPORT INFORMATION
  Report Type: 
  Country: None (occurrence: None)
  Receive Date: 20100909
  Receipt Date: 20100903
  Transmission Date: 20110219
  Serious: Yes (Other)
  Sender: FDA-Public Use
  Company Number: US-GENZYME-FABR-1001459

PATIENT

DRUGS (2)
  1. FABRAZYME [Suspect]
     Indication: FABRY'S DISEASE
     Dosage: 40 MG, UNK
     Route: 042
     Dates: start: 20100623
  2. FABRAZYME [Suspect]
     Dosage: 40 MG, Q2W
     Route: 042
     Dates: start: 20050112, end: 20070101

REACTIONS (2)
  - DEAFNESS BILATERAL [None]
  - PARAESTHESIA [None]
